FAERS Safety Report 16962929 (Version 1)
Quarter: 2019Q4

REPORT INFORMATION
  Report Type: Spontaneous
  Country: GB (occurrence: GB)
  Receive Date: 20191025
  Receipt Date: 20191025
  Transmission Date: 20200122
  Serious: Yes (Other)
  Sender: FDA-Public Use
  Company Number: GB-PFIZER INC-2019457238

PATIENT
  Age: 54 Year
  Sex: Female

DRUGS (2)
  1. SPASMONAL [ALVERINE CITRATE] [Concomitant]
     Dosage: UNK
  2. CELEBREX [Suspect]
     Active Substance: CELECOXIB
     Indication: ARTHRALGIA
     Dosage: 200 MG, DAILY

REACTIONS (2)
  - Hepatitis cholestatic [Unknown]
  - Hepatotoxicity [Recovered/Resolved]
